FAERS Safety Report 8599283 (Version 3)
Quarter: 2014Q2

REPORT INFORMATION
  Report Type: Report from Study
  Country: US (occurrence: US)
  Receive Date: 20120605
  Receipt Date: 20140404
  Transmission Date: 20141212
  Serious: Yes (Death)
  Sender: FDA-Public Use
  Company Number: US-ROCHE-1074928

PATIENT
  Sex: Male

DRUGS (9)
  1. HERCEPTIN [Suspect]
     Indication: GASTRIC CANCER
     Route: 042
     Dates: end: 20110919
  2. CISPLATIN [Concomitant]
     Route: 042
  3. IRINOTECAN HYDROCHLORIDE [Concomitant]
     Route: 042
  4. DEXAMETHASONE SODIUM PHOSPHATE [Concomitant]
     Route: 042
  5. MANNITOL [Concomitant]
     Route: 042
  6. POTASSIUM CHLORIDE [Concomitant]
     Route: 042
  7. MAGNESIUM SULPHATE [Concomitant]
     Route: 042
  8. ATROPIN [Concomitant]
     Route: 065
  9. EMEND [Concomitant]
     Route: 065

REACTIONS (1)
  - Metastases to meninges [Fatal]
